FAERS Safety Report 17562014 (Version 3)
Quarter: 2020Q2

REPORT INFORMATION
  Report Type: Spontaneous
  Country: US (occurrence: US)
  Receive Date: 20200319
  Receipt Date: 20200408
  Transmission Date: 20200713
  Serious: No
  Sender: FDA-Public Use
  Company Number: US-PFIZER INC-2020118830

PATIENT
  Age: 40 Year
  Sex: Female

DRUGS (1)
  1. SOMAVERT [Suspect]
     Active Substance: PEGVISOMANT
     Indication: ACROMEGALY
     Dosage: 10MG DAILY, FOUR TIMES WEEKLY ON SATURDAY, SUNDAY, WEDNESDAY AND THURSDAY
     Route: 058
     Dates: start: 201909

REACTIONS (4)
  - Iron deficiency anaemia [Unknown]
  - Insulin-like growth factor abnormal [Unknown]
  - Off label use [Unknown]
  - Glucose tolerance impaired [Unknown]
